FAERS Safety Report 14559877 (Version 1)
Quarter: 2018Q1

REPORT INFORMATION
  Report Type: Spontaneous
  Country: US (occurrence: US)
  Receive Date: 20180217
  Receipt Date: 20180217
  Transmission Date: 20180509
  Serious: Yes (Other)
  Sender: FDA-Public Use
  Company Number: None

PATIENT
  Age: 44 Year
  Sex: Female
  Weight: 77.11 kg

DRUGS (1)
  1. LATUDA [Suspect]
     Active Substance: LURASIDONE HYDROCHLORIDE
     Indication: BIPOLAR DISORDER
     Dosage: 0 WEEKS - DELIVERY

REACTIONS (6)
  - Exposure during pregnancy [None]
  - Prolonged labour [None]
  - Gestational hypertension [None]
  - Caesarean section [None]
  - Amniotic cavity infection [None]
  - Premature rupture of membranes [None]

NARRATIVE: CASE EVENT DATE: 20170414
